FAERS Safety Report 11043769 (Version 3)
Quarter: 2015Q3

REPORT INFORMATION
  Report Type: Other
  Country: GB (occurrence: GB)
  Receive Date: 20150417
  Receipt Date: 20150706
  Transmission Date: 20151125
  Serious: Yes (Other)
  Sender: FDA-Public Use
  Company Number: GB-MYLANLABS-2015M1011585

PATIENT

DRUGS (2)
  1. METHOTREXATE [Suspect]
     Active Substance: METHOTREXATE
     Indication: PRODUCT USED FOR UNKNOWN INDICATION
     Dosage: UNK
     Route: 065
  2. ENBREL [Suspect]
     Active Substance: ETANERCEPT
     Indication: PRODUCT USED FOR UNKNOWN INDICATION
     Dosage: UNK
     Route: 065

REACTIONS (7)
  - Lower respiratory tract infection [Unknown]
  - Cerebral hypoperfusion [Unknown]
  - Sensory disturbance [Unknown]
  - Confusional state [Unknown]
  - Memory impairment [Unknown]
  - Cerebral disorder [Unknown]
  - Nasopharyngitis [Unknown]
